FAERS Safety Report 15418259 (Version 2)
Quarter: 2019Q2

REPORT INFORMATION
  Report Type: Spontaneous
  Country: US (occurrence: US)
  Receive Date: 20180924
  Receipt Date: 20190405
  Transmission Date: 20190711
  Serious: No
  Sender: FDA-Public Use
  Company Number: US-MYLANLABS-2018M1067687

PATIENT
  Age: 37 Year
  Weight: 81.64 kg

DRUGS (2)
  1. BUPROPION MYLAN [Suspect]
     Active Substance: BUPROPION
     Indication: DEPRESSION
     Dosage: 100 MILLIGRAM, BID
     Dates: start: 201808, end: 201808
  2. PRILOSEC [Concomitant]
     Active Substance: OMEPRAZOLE MAGNESIUM
     Indication: PRODUCT USED FOR UNKNOWN INDICATION

REACTIONS (3)
  - Insomnia [Recovered/Resolved]
  - Product substitution issue [Unknown]
  - Depression [Unknown]

NARRATIVE: CASE EVENT DATE: 20180813
